FAERS Safety Report 7531713-0 (Version None)
Quarter: 2011Q2

REPORT INFORMATION
  Report Type: 
  Country: None (occurrence: None)
  Receive Date: 20110601
  Receipt Date: 20110513
  Transmission Date: 20111010
  Serious: Yes (Hospitalization)
  Sender: FDA-Public Use
  Company Number: AUR-APL-2011-01600

PATIENT
  Age: 50 Year
  Sex: Female
  Weight: 93 kg

DRUGS (6)
  1. LISINOPRIL [Suspect]
     Indication: HYPERTENSION
     Dosage: 5 MG, DAILY, ORAL
     Route: 048
     Dates: start: 20060101, end: 20110304
  2. FEMOSTON 1MG/14 MG [Suspect]
     Indication: MENOPAUSE
     Dosage: 1 TABLET, DAILY,RAL
     Route: 048
     Dates: start: 19990101, end: 20110304
  3. CARBAMAZEPINE [Suspect]
     Indication: RESTLESS LEGS SYNDROME
     Dosage: 100MG, DAILY,ORAL
     Route: 048
     Dates: start: 20101201, end: 20110228
  4. IBUPROFEN [Suspect]
     Indication: HEADACHE
     Dosage: 800 MG, TWICE WEEKLY, ORAL
     Route: 048
     Dates: start: 20010101, end: 20110304
  5. TRAMADOL HCL [Suspect]
     Indication: BACK PAIN
     Dosage: 100MG DAILY,ORAL
     Route: 048
     Dates: start: 20060101, end: 20110304
  6. METOPROLOL TARTRATE [Concomitant]

REACTIONS (6)
  - AMMONIA INCREASED [None]
  - PROTHROMBIN TIME SHORTENED [None]
  - BLOOD BILIRUBIN INCREASED [None]
  - INTERNATIONAL NORMALISED RATIO INCREASED [None]
  - LIVER DISORDER [None]
  - GAMMA-GLUTAMYLTRANSFERASE INCREASED [None]
